FAERS Safety Report 4384928-7 (Version None)
Quarter: 2004Q2

REPORT INFORMATION
  Report Type: 
  Country: None (occurrence: None)
  Receive Date: 20040625
  Receipt Date: 20040604
  Transmission Date: 20050107
  Serious: Yes (Life-Threatening, Hospitalization)
  Sender: FDA-Public Use
  Company Number: IT-ROCHE-369871

PATIENT
  Age: 84 Year
  Sex: Male

DRUGS (3)
  1. TICLID [Suspect]
     Indication: ISCHAEMIC CARDIOMYOPATHY
     Route: 048
     Dates: start: 20040325, end: 20040505
  2. FUROSEMIDE [Concomitant]
     Indication: HYPERTENSIVE HEART DISEASE
     Route: 048
     Dates: start: 20030315
  3. AMLODIPINE [Concomitant]
     Indication: HYPERTENSIVE HEART DISEASE
     Route: 048
     Dates: start: 20030315

REACTIONS (7)
  - BONE MARROW DEPRESSION [None]
  - COUGH [None]
  - DYSPHAGIA [None]
  - DYSPNOEA [None]
  - INFECTION [None]
  - ORAL CANDIDIASIS [None]
  - PHARYNGITIS [None]
